FAERS Safety Report 15931153 (Version 1)
Quarter: 2019Q1

REPORT INFORMATION
  Report Type: Spontaneous
  Country: FR (occurrence: FR)
  Receive Date: 20190207
  Receipt Date: 20190207
  Transmission Date: 20190417
  Serious: Yes (Other)
  Sender: FDA-Public Use
  Company Number: FR-TEVA-2019-FR-1008346

PATIENT
  Age: 40 Year
  Sex: Female

DRUGS (1)
  1. COPAXONE [Suspect]
     Active Substance: GLATIRAMER ACETATE
     Dosage: INJECTIONS WERE PERFORMED MANUALLY
     Route: 065

REACTIONS (6)
  - Limb discomfort [Recovered/Resolved]
  - Product storage error [Unknown]
  - Neurogenic shock [Unknown]
  - Multiple sclerosis relapse [Unknown]
  - Gait inability [Recovered/Resolved]
  - Therapy cessation [Unknown]

NARRATIVE: CASE EVENT DATE: 20190127
